FAERS Safety Report 13639354 (Version 1)
Quarter: 2017Q2

REPORT INFORMATION
  Report Type: Spontaneous
  Country: US (occurrence: US)
  Receive Date: 20170609
  Receipt Date: 20170609
  Transmission Date: 20170830
  Serious: No
  Sender: FDA-Public Use
  Company Number: US-ROCHE-645534

PATIENT
  Age: 70 Year
  Sex: Female

DRUGS (4)
  1. KLONOPIN [Suspect]
     Active Substance: CLONAZEPAM
     Indication: ANXIETY
     Route: 048
  2. CLONAZEPAM. [Suspect]
     Active Substance: CLONAZEPAM
     Indication: ANXIETY
     Dosage: STRENGTH: 0.5
     Route: 065
  3. MAPROTILINE [Concomitant]
     Active Substance: MAPROTILINE
     Route: 065
  4. HYOSCYAMINE. [Concomitant]
     Active Substance: HYOSCYAMINE
     Route: 065

REACTIONS (3)
  - Irritable bowel syndrome [Not Recovered/Not Resolved]
  - Headache [Not Recovered/Not Resolved]
  - Insomnia [Not Recovered/Not Resolved]
